FAERS Safety Report 13692571 (Version 1)
Quarter: 2017Q2

REPORT INFORMATION
  Report Type: Spontaneous
  Country: US (occurrence: US)
  Receive Date: 20170627
  Receipt Date: 20170627
  Transmission Date: 20170830
  Serious: No
  Sender: FDA-Public Use
  Company Number: US-PFIZER INC-2017272881

PATIENT
  Sex: Female

DRUGS (1)
  1. XELJANZ XR [Suspect]
     Active Substance: TOFACITINIB CITRATE
     Dosage: 11 MG, DAILY

REACTIONS (11)
  - Stress [Unknown]
  - Joint swelling [Unknown]
  - Arthralgia [Unknown]
  - Nodal osteoarthritis [Unknown]
  - Hand deformity [Unknown]
  - Asthenia [Unknown]
  - Fibromyalgia [Unknown]
  - Synovial disorder [Unknown]
  - Pain in extremity [Unknown]
  - Synovial cyst [Unknown]
  - Muscle spasms [Unknown]
